FAERS Safety Report 10710884 (Version 1)
Quarter: 2015Q1

REPORT INFORMATION
  Report Type: Spontaneous
  Country: US (occurrence: US)
  Receive Date: 20150114
  Receipt Date: 20150114
  Transmission Date: 20150721
  Serious: No
  Sender: FDA-Public Use
  Company Number: US-TEVA-534463USA

PATIENT
  Age: 70 Year
  Sex: Male

DRUGS (2)
  1. TREANDA [Suspect]
     Active Substance: BENDAMUSTINE HYDROCHLORIDE
     Indication: MANTLE CELL LYMPHOMA
     Route: 065
     Dates: start: 20141119
  2. RITUXAN [Concomitant]
     Active Substance: RITUXIMAB

REACTIONS (1)
  - Rash [Not Recovered/Not Resolved]
